FAERS Safety Report 24449724 (Version 1)
Quarter: 2024Q4

REPORT INFORMATION
  Report Type: Spontaneous
  Country: AT (occurrence: AT)
  Receive Date: 20241017
  Receipt Date: 20241017
  Transmission Date: 20250114
  Serious: Yes (Other)
  Sender: MYLAN
  Company Number: AT-MYLANLABS-2024M1093122

PATIENT
  Age: 8 Decade
  Sex: Male

DRUGS (4)
  1. LENALIDOMIDE [Suspect]
     Active Substance: LENALIDOMIDE
     Indication: Chronic lymphocytic leukaemia
     Dosage: UNK
     Route: 065
  2. OFATUMUMAB [Suspect]
     Active Substance: OFATUMUMAB
     Indication: Chronic lymphocytic leukaemia
     Dosage: UNK
     Route: 065
  3. IBRUTINIB [Concomitant]
     Active Substance: IBRUTINIB
     Indication: Chronic lymphocytic leukaemia
     Dosage: UNK
     Route: 065
  4. IDELALISIB [Concomitant]
     Active Substance: IDELALISIB
     Indication: Chronic lymphocytic leukaemia
     Dosage: UNK UNK, CYCLE, RECEIVED 5 CYCLES
     Route: 065

REACTIONS (1)
  - Therapy non-responder [Unknown]
